FAERS Safety Report 6088740-2 (Version None)
Quarter: 2009Q1

REPORT INFORMATION
  Report Type: 
  Country: None (occurrence: None)
  Receive Date: 20090224
  Receipt Date: 20090210
  Transmission Date: 20090719
  Serious: Yes (Death)
  Sender: FDA-Public Use
  Company Number: US-PFIZER INC-2009166822

PATIENT
  Sex: Male

DRUGS (14)
  1. LIPITOR [Suspect]
     Indication: BLOOD CHOLESTEROL
     Dosage: 40 MG, 1X/DAY
  2. TRICOR [Interacting]
     Dosage: 145 MG, 1X/DAY
  3. NIASPAN [Interacting]
     Dosage: 500 MG, UNK
     Dates: start: 20060611
  4. ACTOS [Concomitant]
     Dosage: UNK
  5. ATENOLOL [Concomitant]
     Dosage: 100 MG, UNK
  6. RISPERDAL [Concomitant]
     Dosage: 3 MG, UNK
  7. EFFEXOR [Concomitant]
     Dosage: 150 MG, UNK
  8. LANOXIN [Concomitant]
     Dosage: UNK
  9. WELLBUTRIN XL [Concomitant]
     Dosage: 300 MG, UNK
  10. LANTUS [Concomitant]
     Dosage: 70 IU, 1X/DAY
  11. LORAZEPAM [Concomitant]
     Dosage: 1 MG, 3X/DAY
  12. VITAMIN B1 TAB [Concomitant]
  13. VITAMIN B6 [Concomitant]
  14. VITAMIN B-12 [Concomitant]

REACTIONS (3)
  - DRUG INTERACTION [None]
  - MYOCARDIAL INFARCTION [None]
  - OVERDOSE [None]
